FAERS Safety Report 11078985 (Version 1)
Quarter: 2015Q2

REPORT INFORMATION
  Report Type: Spontaneous
  Country: US (occurrence: None)
  Receive Date: 20150429
  Receipt Date: 20150429
  Transmission Date: 20150821
  Serious: Yes (Other)
  Sender: FDA-Public Use
  Company Number: None

PATIENT
  Age: 49 Year
  Sex: Female

DRUGS (1)
  1. BARACLUDE [Suspect]
     Active Substance: ENTECAVIR

REACTIONS (6)
  - Rash [None]
  - Lip swelling [None]
  - Skin disorder [None]
  - Rash pruritic [None]
  - Vein disorder [None]
  - Lip exfoliation [None]

NARRATIVE: CASE EVENT DATE: 20141025
